FAERS Safety Report 20810213 (Version 2)
Quarter: 2022Q2

REPORT INFORMATION
  Report Type: Spontaneous
  Country: US (occurrence: US)
  Receive Date: 20220510
  Receipt Date: 20220520
  Transmission Date: 20220721
  Serious: Yes (Hospitalization, Other)
  Sender: FDA-Public Use
  Company Number: US-PFIZER INC-202200672588

PATIENT
  Age: 40 Year
  Sex: Female
  Weight: 77.11 kg

DRUGS (10)
  1. GEODON [Suspect]
     Active Substance: ZIPRASIDONE HYDROCHLORIDE\ZIPRASIDONE MESYLATE
     Indication: Mental disorder
     Dosage: UNK (1 TO 2 TIMES A DAY)
     Route: 048
  2. GEODON [Suspect]
     Active Substance: ZIPRASIDONE HYDROCHLORIDE\ZIPRASIDONE MESYLATE
     Indication: Post-traumatic stress disorder
     Dosage: UNK (I THINK ONCE)
     Route: 048
  3. KLONOPIN [Concomitant]
     Active Substance: CLONAZEPAM
     Indication: Mental disorder
     Dosage: UNK
  4. KLONOPIN [Concomitant]
     Active Substance: CLONAZEPAM
     Indication: Post-traumatic stress disorder
  5. PRAZOSIN [Concomitant]
     Active Substance: PRAZOSIN
     Dosage: UNK
  6. VALIUM [Concomitant]
     Active Substance: DIAZEPAM
     Indication: Post-traumatic stress disorder
     Dosage: UNK
  7. VALIUM [Concomitant]
     Active Substance: DIAZEPAM
     Indication: Mental disorder
  8. ASPIRIN [Concomitant]
     Active Substance: ASPIRIN
     Dosage: UNK
  9. TYLENOL [Concomitant]
     Active Substance: ACETAMINOPHEN
     Dosage: UNK
  10. CLONIDINE [Concomitant]
     Active Substance: CLONIDINE
     Dosage: UNK

REACTIONS (4)
  - Cardiac failure congestive [Unknown]
  - Myocardial infarction [Unknown]
  - Cardiac disorder [Unknown]
  - Off label use [Unknown]

NARRATIVE: CASE EVENT DATE: 20220415
